FAERS Safety Report 10083578 (Version 1)
Quarter: 2014Q2

REPORT INFORMATION
  Report Type: Spontaneous
  Country: FR (occurrence: FR)
  Receive Date: 20140417
  Receipt Date: 20140417
  Transmission Date: 20141212
  Serious: Yes (Death, Other)
  Sender: FDA-Public Use
  Company Number: FR-CELGENEUS-056-21660-14040624

PATIENT
  Sex: 0

DRUGS (2)
  1. ABRAXANE [Suspect]
     Indication: PANCREATIC CARCINOMA METASTATIC
     Route: 041
     Dates: start: 200905, end: 201204
  2. GEMCITABINE [Concomitant]
     Indication: PANCREATIC CARCINOMA METASTATIC
     Route: 065
     Dates: start: 200905, end: 201204

REACTIONS (8)
  - Death [Fatal]
  - Sepsis [Unknown]
  - Neutropenia [Unknown]
  - Pancreatic carcinoma [Unknown]
  - Fatigue [Unknown]
  - Neuropathy peripheral [Unknown]
  - Alopecia [Unknown]
  - Pneumonia [Unknown]
